FAERS Safety Report 24382679 (Version 1)
Quarter: 2024Q4

REPORT INFORMATION
  Report Type: Spontaneous
  Country: TW (occurrence: TW)
  Receive Date: 20241001
  Receipt Date: 20241001
  Transmission Date: 20250115
  Serious: Yes (Death, Other)
  Sender: ORGANON
  Company Number: TW-ORGANON-O2409TWN002227

PATIENT
  Age: 68 Year
  Sex: Female

DRUGS (3)
  1. ALENDRONATE SODIUM [Suspect]
     Active Substance: ALENDRONATE SODIUM
     Indication: Osteoporosis
     Dosage: 70 MILLIGRAM, QW (70 MG  WEEKLY, ORAL)
     Route: 048
  2. PROLIA [Suspect]
     Active Substance: DENOSUMAB
     Indication: Osteoporosis
     Dosage: 60 MILLIGRAM, Q6M (60 MG-6 MONTHLY, SUBCUTANEOUSLY)
     Route: 058
  3. BONVIVA [Suspect]
     Active Substance: IBANDRONATE SODIUM
     Indication: Osteoporosis
     Dosage: 3 MILLIGRAM, Q3W (3 MG-3 WEEKLY, IVA)
     Route: 042

REACTIONS (3)
  - Osteonecrosis of jaw [Fatal]
  - Tooth extraction [Fatal]
  - Fistula [Fatal]
